FAERS Safety Report 9529990 (Version 3)
Quarter: 2013Q4

REPORT INFORMATION
  Report Type: Spontaneous
  Country: US (occurrence: US)
  Receive Date: 20130917
  Receipt Date: 20131024
  Transmission Date: 20140711
  Serious: Yes (Other)
  Sender: FDA-Public Use
  Company Number: US-ROCHE-1275909

PATIENT
  Age: 88 Year
  Sex: Female

DRUGS (6)
  1. LUCENTIS [Suspect]
     Indication: AGE-RELATED MACULAR DEGENERATION
     Route: 065
     Dates: start: 20120913, end: 20121119
  2. AVASTIN [Suspect]
     Indication: AGE-RELATED MACULAR DEGENERATION
     Route: 050
     Dates: start: 20120604, end: 20120809
  3. HERBAL MEDICINE [Concomitant]
  4. ASCORBIC ACID [Concomitant]
  5. COENZYME Q10 COMPLEX (UNK INGREDIENTS) [Concomitant]
     Route: 065
  6. FISH OIL [Concomitant]

REACTIONS (2)
  - Transient ischaemic attack [Recovered/Resolved]
  - Somnolence [Unknown]
